FAERS Safety Report 8760293 (Version 2)
Quarter: 2013Q1

REPORT INFORMATION
  Report Type: Spontaneous
  Country: US (occurrence: None)
  Receive Date: 20120817
  Receipt Date: 20130206
  Transmission Date: 20140127
  Serious: Yes (Death, Other)
  Sender: FDA-Public Use
  Company Number: TPA2012A05442

PATIENT
  Age: 72 Year
  Sex: Male
  Weight: 90.72 kg

DRUGS (4)
  1. ACTOS [Suspect]
     Indication: TYPE 2 DIABETES MELLITUS
     Dates: start: 2004, end: 2011
  2. PRANDIN(REPAGLINIDE) [Concomitant]
  3. LANTUS(INSULIN GLARGINE) [Concomitant]
  4. BYETTA(EXENATIDE) [Concomitant]

REACTIONS (2)
  - Bladder cancer [None]
  - Metastatic carcinoma of the bladder [None]
